FAERS Safety Report 18213151 (Version 1)
Quarter: 2020Q3

REPORT INFORMATION
  Report Type: Spontaneous
  Country: US (occurrence: US)
  Receive Date: 20200830
  Receipt Date: 20200830
  Transmission Date: 20201103
  Serious: Yes (Other)
  Sender: FDA-Public Use
  Company Number: None

PATIENT
  Age: 59 Year
  Sex: Female
  Weight: 85.5 kg

DRUGS (7)
  1. XANAX [Concomitant]
     Active Substance: ALPRAZOLAM
  2. ZOFRAN [Concomitant]
     Active Substance: ONDANSETRON HYDROCHLORIDE
  3. INDERAL ER [Concomitant]
  4. HCTZ [Concomitant]
     Active Substance: HYDROCHLOROTHIAZIDE
  5. AJOVY [Suspect]
     Active Substance: FREMANEZUMAB-VFRM
     Indication: MIGRAINE PROPHYLAXIS
     Dosage: ?          QUANTITY:1 INJECTION(S);OTHER FREQUENCY:1 SC EVERY MONTH;?
     Route: 058
     Dates: start: 20200407, end: 20200512
  6. IMITREX [Concomitant]
     Active Substance: SUMATRIPTAN SUCCINATE
  7. TYLENOL [Concomitant]
     Active Substance: ACETAMINOPHEN

REACTIONS (27)
  - Nausea [None]
  - Myalgia [None]
  - Influenza like illness [None]
  - Feeling abnormal [None]
  - Weight increased [None]
  - Disturbance in attention [None]
  - Abdominal rigidity [None]
  - Fatigue [None]
  - Vision blurred [None]
  - Arthralgia [None]
  - Neuralgia [None]
  - Balance disorder [None]
  - Anxiety [None]
  - Palpitations [None]
  - Symptom recurrence [None]
  - Dizziness [None]
  - Dyspnoea [None]
  - Confusional state [None]
  - Poor quality sleep [None]
  - Abdominal distension [None]
  - Bone pain [None]
  - Constipation [None]
  - Discomfort [None]
  - Agitation [None]
  - Vertigo [None]
  - Paraesthesia [None]
  - Migraine [None]

NARRATIVE: CASE EVENT DATE: 20200817
